FAERS Safety Report 25348533 (Version 1)
Quarter: 2025Q2

REPORT INFORMATION
  Report Type: Spontaneous
  Country: DE (occurrence: DE)
  Receive Date: 20250522
  Receipt Date: 20250522
  Transmission Date: 20250717
  Serious: Yes (Other)
  Sender: MYLAN
  Company Number: DE-KRKA-DE2025K07963SPO

PATIENT
  Age: 87 Year

DRUGS (12)
  1. LENALIDOMIDE [Suspect]
     Active Substance: LENALIDOMIDE
     Indication: Diffuse large B-cell lymphoma
  2. LENALIDOMIDE [Suspect]
     Active Substance: LENALIDOMIDE
     Route: 065
  3. LENALIDOMIDE [Suspect]
     Active Substance: LENALIDOMIDE
     Route: 065
  4. LENALIDOMIDE [Suspect]
     Active Substance: LENALIDOMIDE
  5. TAFASITAMAB [Suspect]
     Active Substance: TAFASITAMAB
     Indication: Diffuse large B-cell lymphoma
  6. TAFASITAMAB [Suspect]
     Active Substance: TAFASITAMAB
     Route: 065
  7. TAFASITAMAB [Suspect]
     Active Substance: TAFASITAMAB
     Route: 065
  8. TAFASITAMAB [Suspect]
     Active Substance: TAFASITAMAB
  9. GLOFITAMAB [Suspect]
     Active Substance: GLOFITAMAB
     Indication: Product used for unknown indication
  10. GLOFITAMAB [Suspect]
     Active Substance: GLOFITAMAB
     Route: 065
  11. GLOFITAMAB [Suspect]
     Active Substance: GLOFITAMAB
     Route: 065
  12. GLOFITAMAB [Suspect]
     Active Substance: GLOFITAMAB

REACTIONS (5)
  - Diffuse large B-cell lymphoma [Recovered/Resolved]
  - Cytokine release syndrome [Unknown]
  - Urinary retention [Unknown]
  - Disease progression [Recovered/Resolved]
  - Off label use [Unknown]

NARRATIVE: CASE EVENT DATE: 20230401
